FAERS Safety Report 8352740-X (Version None)
Quarter: 2012Q2

REPORT INFORMATION
  Report Type: 
  Country: None (occurrence: None)
  Receive Date: 20120511
  Receipt Date: 20081021
  Transmission Date: 20120825
  Serious: No
  Sender: FDA-Public Use
  Company Number: US-TEVA-2008000398

PATIENT
  Sex: Male
  Weight: 88.53 kg

DRUGS (6)
  1. TREANDA [Suspect]
     Route: 042
     Dates: start: 20080911, end: 20080911
  2. ZOCOR [Concomitant]
     Dates: start: 20040101
  3. COUMADIN [Concomitant]
     Dates: start: 20080101
  4. TREANDA [Suspect]
     Route: 042
     Dates: start: 20080816, end: 20080816
  5. TREANDA [Suspect]
     Indication: CHRONIC LYMPHOCYTIC LEUKAEMIA
     Route: 042
     Dates: start: 20080815, end: 20080815
  6. TREANDA [Suspect]
     Route: 042
     Dates: start: 20080912, end: 20080912

REACTIONS (1)
  - ANAEMIA [None]
